FAERS Safety Report 4629458-X (Version None)
Quarter: 2005Q2

REPORT INFORMATION
  Report Type: 
  Country: None (occurrence: None)
  Receive Date: 20050405
  Receipt Date: 20050324
  Transmission Date: 20051028
  Serious: Yes (Other)
  Sender: FDA-Public Use
  Company Number: 2005046302

PATIENT
  Age: 13 Year
  Sex: Female

DRUGS (2)
  1. GENOTROPIN [Suspect]
     Indication: TURNER'S SYNDROME
  2. ESTROGEN NOS [Concomitant]

REACTIONS (5)
  - BONE MARROW DISORDER [None]
  - BREAST ATROPHY [None]
  - INFECTION [None]
  - LOWER LIMB DEFORMITY [None]
  - ORGAN FAILURE [None]
